FAERS Safety Report 7266452-7 (Version None)
Quarter: 2011Q1

REPORT INFORMATION
  Report Type: 
  Country: None (occurrence: None)
  Receive Date: 20110131
  Receipt Date: 20110117
  Transmission Date: 20110831
  Serious: Yes (Hospitalization)
  Sender: FDA-Public Use
  Company Number: DE-MYLANLABS-2010S1018258

PATIENT
  Age: 71 Year
  Sex: Female
  Weight: 59 kg

DRUGS (6)
  1. LUTEIN /01638501/ [Concomitant]
     Indication: MACULAR DEGENERATION
     Route: 048
     Dates: start: 20100101
  2. SIMVADURA [Suspect]
     Indication: HYPERCHOLESTEROLAEMIA
     Route: 048
     Dates: start: 20080101, end: 20100811
  3. DOXEPIN HCL [Suspect]
     Indication: SLEEP DISORDER
     Dosage: EINNAHME AUFGRUND V. SCHLAFSTORUNG BEI BEDARF 1XABENDS, DURCHSCHNITTLICH 2X/WOCHE
     Route: 048
     Dates: start: 20090101, end: 20100805
  4. BISOPROLOL [Suspect]
     Indication: ATRIAL FIBRILLATION
     Route: 048
     Dates: start: 20080101, end: 20100818
  5. FALITHROM [Suspect]
     Indication: CEREBRAL INFARCTION
     Dosage: DURCHSCHNITTLICH 15 MG PRO WOCHE, DOSIERUNG NACH INR
     Route: 048
     Dates: start: 19970101, end: 20100810
  6. VIANI [Concomitant]
     Indication: ASTHMA
     Dosage: 1 DF = 250 ?G FLUTICASON + 50 ?G SALMETEROL
     Route: 055

REACTIONS (1)
  - HEPATITIS TOXIC [None]
